FAERS Safety Report 23596691 (Version 5)
Quarter: 2025Q1

REPORT INFORMATION
  Report Type: Spontaneous
  Country: US (occurrence: US)
  Receive Date: 20240305
  Receipt Date: 20250121
  Transmission Date: 20250409
  Serious: Yes (Hospitalization)
  Sender: PFIZER
  Company Number: US-PFIZER INC-PV202400030370

PATIENT
  Age: 57 Year
  Sex: Female

DRUGS (2)
  1. INLYTA [Suspect]
     Active Substance: AXITINIB
  2. INLYTA [Suspect]
     Active Substance: AXITINIB
     Dosage: 5 MG, 2X/DAY
     Dates: end: 20240311

REACTIONS (5)
  - Thrombosis [Unknown]
  - Fatigue [Unknown]
  - Tremor [Unknown]
  - Dry mouth [Unknown]
  - Throat irritation [Unknown]
